FAERS Safety Report 8448861-3 (Version None)
Quarter: 2012Q2

REPORT INFORMATION
  Report Type: 
  Country: None (occurrence: None)
  Receive Date: 20120619
  Receipt Date: 20120611
  Transmission Date: 20120825
  Serious: Yes (Other)
  Sender: FDA-Public Use
  Company Number: US-US-EMD SERONO, INC.-7027722

PATIENT
  Sex: Female

DRUGS (4)
  1. AON [Concomitant]
     Indication: FLUID REPLACEMENT
  2. REBIF [Suspect]
     Indication: MULTIPLE SCLEROSIS
     Route: 058
     Dates: start: 20100428
  3. AON [Concomitant]
     Indication: PAIN MANAGEMENT
  4. AON [Concomitant]
     Indication: MULTIPLE SCLEROSIS

REACTIONS (5)
  - EAR HAEMORRHAGE [None]
  - INJECTION SITE ANAESTHESIA [None]
  - INJECTION SITE HAEMORRHAGE [None]
  - HEADACHE [None]
  - INJECTION SITE ERYTHEMA [None]
